FAERS Safety Report 9783343 (Version 1)
Quarter: 2013Q4

REPORT INFORMATION
  Report Type: Spontaneous
  Country: US (occurrence: US)
  Receive Date: 20131226
  Receipt Date: 20131226
  Transmission Date: 20140711
  Serious: Yes (Hospitalization)
  Sender: FDA-Public Use
  Company Number: US-BAYER-2013-156684

PATIENT
  Age: 49 Year
  Sex: Female

DRUGS (8)
  1. YASMIN [Suspect]
  2. DYAZIDE [Concomitant]
     Dosage: 37.5/25 1 DAILY
     Dates: start: 20070526
  3. MIDRIN [Concomitant]
     Indication: HEADACHE
     Dosage: 1-2 Q 4H P.R.N.
     Dates: start: 20070526
  4. VERAPAMIL [Concomitant]
     Dosage: 40 MG, TID
     Dates: start: 20070526
  5. TOPROL XL [Concomitant]
  6. BENICAR HCT [Concomitant]
  7. COUMADIN [Concomitant]
     Dosage: 5 MG, ONCE
  8. ZOLOFT [Concomitant]

REACTIONS (1)
  - Pulmonary embolism [None]
